FAERS Safety Report 5046662-X (Version None)
Quarter: 2006Q3

REPORT INFORMATION
  Report Type: 
  Country: None (occurrence: None)
  Receive Date: 20060707
  Receipt Date: 20060707
  Transmission Date: 20061208
  Serious: Yes (Disabling, Other)
  Sender: FDA-Public Use
  Company Number: None

PATIENT
  Age: 41 Year
  Sex: Female
  Weight: 43.9989 kg

DRUGS (2)
  1. BONIVA [Suspect]
     Indication: BARRETT'S OESOPHAGUS
     Dosage: 3CC Q 3 MONTHS IV BOLUS
     Route: 042
     Dates: start: 20060629, end: 20060629
  2. BONIVA [Suspect]
     Indication: OSTEOPENIA
     Dosage: 3CC Q 3 MONTHS IV BOLUS
     Route: 042
     Dates: start: 20060629, end: 20060629

REACTIONS (9)
  - CARPAL TUNNEL SYNDROME [None]
  - CIRCUMSTANCE OR INFORMATION CAPABLE OF LEADING TO MEDICATION ERROR [None]
  - HYPOAESTHESIA [None]
  - INFUSION SITE REACTION [None]
  - MOVEMENT DISORDER [None]
  - MUSCLE INJURY [None]
  - NERVE COMPRESSION [None]
  - OEDEMA [None]
  - SWELLING [None]
